FAERS Safety Report 5978919-X (Version None)
Quarter: 2008Q4

REPORT INFORMATION
  Report Type: 
  Country: None (occurrence: None)
  Receive Date: 20081128
  Receipt Date: 20081112
  Transmission Date: 20090506
  Serious: Yes (Hospitalization)
  Sender: FDA-Public Use
  Company Number: 100#01#2008-05778

PATIENT
  Age: 56 Year
  Sex: Male

DRUGS (15)
  1. SALBUTAMOL SULPHATE (SALBUTAMOL SULPHATE) [Suspect]
     Indication: DRUG USE FOR UNKNOWN INDICATION
  2. AMLODIPINE [Suspect]
     Indication: DRUG USE FOR UNKNOWN INDICATION
  3. TORASMIDE (TORASMIDE) [Suspect]
     Indication: DRUG USE FOR UNKNOWN INDICATION
  4. DIGITOXIN (DIGITOXIN) [Suspect]
     Indication: DRUG USE FOR UNKNOWN INDICATION
  5. RAMIPRIL [Suspect]
     Indication: DRUG USE FOR UNKNOWN INDICATION
  6. SALMETEROL XINAFOATE MULTI DOSE POWDER INHALER (SALMETEROL XINAFOATE) [Suspect]
     Indication: CHRONIC OBSTRUCTIVE PULMONARY DISEASE
     Dosage: 50 UG TWICE DAILY
     Dates: start: 20080423
  7. FLUTICASONE PROPIONATE MULTI DOSE POWDER INHALER (FLUTICASONE PROPIONA [Suspect]
     Indication: CHRONIC OBSTRUCTIVE PULMONARY DISEASE
     Dosage: 500 UG TWICE DAILY
     Dates: start: 20080423
  8. MECHANICAL VETILATION UNSPECIFIED INHALER DEVICE [Suspect]
     Indication: CHRONIC OBSTRUCTIVE PULMONARY DISEASE
  9. TIOTROPIUM UNSPECIFIED INHALER DEVICE (TIOTROPIUM) [Suspect]
     Indication: CHRONIC OBSTRUCTIVE PULMONARY DISEASE
     Dosage: 18 UG
  10. THEOPHYLLINE [Suspect]
     Indication: CHRONIC OBSTRUCTIVE PULMONARY DISEASE
     Dosage: 40 MG
  11. PHENPROCOUMON (PHENPROCOUMON) [Suspect]
     Indication: DRUG USE FOR UNKNOWN INDICATION
  12. VOTUM PULS (HYDROCHLORIDE, OLMESARTAN MEDOXOMIL) [Suspect]
     Indication: DRUG USE FOR UNKNOWN INDICATION
  13. HUMAN INT/LONG INSULIN (INSULIN) [Suspect]
  14. SHORT-ACTING INSULIN (INSULIN) [Suspect]
     Indication: DRUG USE FOR UNKNOWN INDICATION
  15. BOSENTAN (BOSENTAN) [Concomitant]

REACTIONS (2)
  - CHRONIC OBSTRUCTIVE PULMONARY DISEASE [None]
  - PNEUMONIA [None]
